FAERS Safety Report 4943334-4 (Version None)
Quarter: 2006Q1

REPORT INFORMATION
  Report Type: 
  Country: None (occurrence: None)
  Receive Date: 20060309
  Receipt Date: 20060227
  Transmission Date: 20060701
  Serious: Yes (Other)
  Sender: FDA-Public Use
  Company Number: 2006029987

PATIENT
  Age: 50 Year
  Sex: Male

DRUGS (2)
  1. XANAX [Suspect]
     Indication: ILL-DEFINED DISORDER
     Dosage: (2 MG)
  2. LORTAB [Concomitant]

REACTIONS (3)
  - ANOREXIA [None]
  - ASTHENIA [None]
  - DRUG ABUSER [None]
